FAERS Safety Report 15961817 (Version 5)
Quarter: 2019Q3

REPORT INFORMATION
  Report Type: Spontaneous
  Country: US (occurrence: US)
  Receive Date: 20190214
  Receipt Date: 20190909
  Transmission Date: 20191004
  Serious: Yes (Death, Other)
  Sender: FDA-Public Use
  Company Number: US-ASTRAZENECA-2018SF65285

PATIENT
  Sex: Female

DRUGS (41)
  1. LISINOPRIL. [Concomitant]
     Active Substance: LISINOPRIL
  2. PROMETHAZINE [Concomitant]
     Active Substance: PROMETHAZINE HYDROCHLORIDE
  3. PRILOSEC [Suspect]
     Active Substance: OMEPRAZOLE MAGNESIUM
     Indication: GASTROOESOPHAGEAL REFLUX DISEASE
     Route: 048
     Dates: start: 20150122
  4. AZITHROMYCIN ANHYDROUS. [Concomitant]
     Active Substance: AZITHROMYCIN ANHYDROUS
  5. PREDNISONE. [Concomitant]
     Active Substance: PREDNISONE
  6. ELIQUIS [Concomitant]
     Active Substance: APIXABAN
  7. NYSTATIN. [Concomitant]
     Active Substance: NYSTATIN
  8. TUMS [Concomitant]
     Active Substance: CALCIUM CARBONATE
  9. NEXIUM 24HR [Suspect]
     Active Substance: ESOMEPRAZOLE MAGNESIUM
     Indication: GASTROOESOPHAGEAL REFLUX DISEASE
     Route: 048
     Dates: start: 2014, end: 2016
  10. PREVACID 24 HR [Suspect]
     Active Substance: LANSOPRAZOLE
     Indication: GASTROOESOPHAGEAL REFLUX DISEASE
     Route: 065
     Dates: start: 200805, end: 201610
  11. PROTONIX [Suspect]
     Active Substance: PANTOPRAZOLE SODIUM
     Indication: GASTROOESOPHAGEAL REFLUX DISEASE
     Dosage: GENERIC
     Route: 065
     Dates: start: 2003, end: 2012
  12. PREDNISONE. [Concomitant]
     Active Substance: PREDNISONE
  13. FOSAMAX [Concomitant]
     Active Substance: ALENDRONATE SODIUM
  14. COUMADIN [Concomitant]
     Active Substance: WARFARIN SODIUM
  15. LORAZEPAM. [Concomitant]
     Active Substance: LORAZEPAM
  16. LOSARTAN. [Concomitant]
     Active Substance: LOSARTAN
  17. FUROSEMIDE. [Concomitant]
     Active Substance: FUROSEMIDE
  18. ACYCLOVIR. [Concomitant]
     Active Substance: ACYCLOVIR
  19. FAMOTIDINE. [Concomitant]
     Active Substance: FAMOTIDINE
  20. PRILOSEC [Suspect]
     Active Substance: OMEPRAZOLE MAGNESIUM
     Indication: GASTROOESOPHAGEAL REFLUX DISEASE
     Route: 048
     Dates: start: 1993, end: 2004
  21. PROTONIX [Suspect]
     Active Substance: PANTOPRAZOLE SODIUM
     Indication: GASTROOESOPHAGEAL REFLUX DISEASE
     Route: 065
     Dates: start: 20150122
  22. PROTONIX [Suspect]
     Active Substance: PANTOPRAZOLE SODIUM
     Indication: GASTROOESOPHAGEAL REFLUX DISEASE
     Route: 048
     Dates: start: 20160216
  23. PHENERGAN [Concomitant]
     Active Substance: PROMETHAZINE HYDROCHLORIDE
  24. ALBUTEROL. [Concomitant]
     Active Substance: ALBUTEROL
  25. ATENOLOL. [Concomitant]
     Active Substance: ATENOLOL
  26. WARFARIN [Concomitant]
     Active Substance: WARFARIN
  27. AUGMENTIN [Concomitant]
     Active Substance: AMOXICILLIN\CLAVULANATE POTASSIUM
  28. CEFALEXIN [Concomitant]
     Active Substance: CEPHALEXIN
  29. PRILOSEC OTC [Suspect]
     Active Substance: OMEPRAZOLE MAGNESIUM
     Indication: GASTROOESOPHAGEAL REFLUX DISEASE
     Route: 048
     Dates: start: 20150122
  30. PREDNISONE. [Concomitant]
     Active Substance: PREDNISONE
  31. AZITHROMYCIN ANHYDROUS. [Concomitant]
     Active Substance: AZITHROMYCIN ANHYDROUS
  32. BENZONATATE. [Concomitant]
     Active Substance: BENZONATATE
  33. VYTORIN [Concomitant]
     Active Substance: EZETIMIBE\SIMVASTATIN
  34. PRAVASTATIN. [Concomitant]
     Active Substance: PRAVASTATIN
  35. PRILOSEC OTC [Suspect]
     Active Substance: OMEPRAZOLE MAGNESIUM
     Indication: GASTROOESOPHAGEAL REFLUX DISEASE
     Route: 048
     Dates: start: 2004
  36. PREVACID [Suspect]
     Active Substance: LANSOPRAZOLE
     Indication: GASTROOESOPHAGEAL REFLUX DISEASE
     Route: 065
  37. PROTONIX [Suspect]
     Active Substance: PANTOPRAZOLE SODIUM
     Indication: GASTROOESOPHAGEAL REFLUX DISEASE
     Route: 065
     Dates: start: 201202, end: 201610
  38. METAMUCIL [Concomitant]
     Active Substance: PLANTAGO SEED
  39. MELOXICAM. [Concomitant]
     Active Substance: MELOXICAM
  40. CARVEDILOL. [Concomitant]
     Active Substance: CARVEDILOL
  41. ZANTAC [Concomitant]
     Active Substance: RANITIDINE HYDROCHLORIDE

REACTIONS (5)
  - Renal injury [Unknown]
  - Renal impairment [Unknown]
  - Renal failure [Fatal]
  - Rebound acid hypersecretion [Unknown]
  - Chronic kidney disease [Unknown]
